FAERS Safety Report 23649856 (Version 1)
Quarter: 2024Q1

REPORT INFORMATION
  Report Type: Spontaneous
  Country: DE (occurrence: DE)
  Receive Date: 20240319
  Receipt Date: 20240319
  Transmission Date: 20240410
  Serious: Yes (Hospitalization)
  Sender: FDA-Public Use
  Company Number: None

PATIENT
  Age: 66 Year
  Sex: Female
  Weight: 72 kg

DRUGS (17)
  1. AVASTIN [Suspect]
     Active Substance: BEVACIZUMAB
     Indication: Breast cancer metastatic
     Dosage: 1080 MG, UNK
     Route: 042
     Dates: end: 20130124
  2. AVASTIN [Suspect]
     Active Substance: BEVACIZUMAB
     Dosage: 540 MG, UNK
     Route: 042
     Dates: start: 20130124, end: 20130502
  3. AVASTIN [Suspect]
     Active Substance: BEVACIZUMAB
     Indication: Breast cancer
     Dosage: LAST DOSE PRIOR TO SAE: 24/JAN/2013
     Route: 042
     Dates: start: 20121004
  4. DEXAMETHASONE [Suspect]
     Active Substance: DEXAMETHASONE
     Indication: Premedication
     Dosage: 4 MG, UNK
     Route: 042
     Dates: start: 20121004, end: 20130124
  5. XELODA [Suspect]
     Active Substance: CAPECITABINE
     Indication: Breast cancer metastatic
     Dosage: 2000 MG/M2, QD (FROM D1- D4 OF EACH CYCLE)
     Route: 048
     Dates: start: 20121004, end: 20130319
  6. XELODA [Suspect]
     Active Substance: CAPECITABINE
     Dosage: 2000 MG/M2, QD (FROM D1-D14 OF EACH CYCLE)
     Route: 048
     Dates: start: 20130411, end: 20130502
  7. XELODA [Suspect]
     Active Substance: CAPECITABINE
     Indication: Breast cancer metastatic
     Dosage: DOSE: 3000 MG, FROM D1-D14 OF EACH CYCLE
     Route: 048
     Dates: start: 20121004, end: 20130319
  8. BISOPROLOL [Concomitant]
     Active Substance: BISOPROLOL\BISOPROLOL FUMARATE
     Indication: Product used for unknown indication
     Dosage: UNK
     Route: 065
  9. GRANISETRON [Concomitant]
     Active Substance: GRANISETRON
     Indication: Premedication
     Dosage: 3 MG, UNK
     Route: 042
     Dates: start: 20121004, end: 20130124
  10. MCP [Concomitant]
     Active Substance: METOCLOPRAMIDE HYDROCHLORIDE
     Indication: Nausea
     Dosage: 1.000DF QD
     Route: 048
     Dates: start: 20121025
  11. MCP [Concomitant]
     Active Substance: METOCLOPRAMIDE HYDROCHLORIDE
     Indication: Nausea
     Dosage: 1 DF, QD
     Route: 054
     Dates: start: 20130505
  12. MCP [Concomitant]
     Active Substance: METOCLOPRAMIDE HYDROCHLORIDE
     Dosage: 1 DF, UNK
     Route: 048
     Dates: start: 20121025
  13. MCP [Concomitant]
     Active Substance: METOCLOPRAMIDE HYDROCHLORIDE
     Dosage: UNK
     Route: 048
  14. MCP [Concomitant]
     Active Substance: METOCLOPRAMIDE HYDROCHLORIDE
     Dosage: UNK
     Route: 048
  15. PACLITAXEL [Concomitant]
     Active Substance: PACLITAXEL
     Indication: Breast cancer
     Dosage: 175 MG/M2, UNK
     Route: 042
  16. RAMIPRIL [Concomitant]
     Active Substance: RAMIPRIL
     Indication: Product used for unknown indication
     Dosage: UNK
     Route: 065
  17. ZOLEDRONIC ACID [Concomitant]
     Active Substance: ZOLEDRONIC ACID
     Indication: Metastases to bone
     Dosage: 4 MG, UNK
     Route: 042
     Dates: start: 20121204, end: 20130110

REACTIONS (2)
  - Ophthalmic herpes zoster [Recovered/Resolved]
  - Diplopia [Recovered/Resolved]

NARRATIVE: CASE EVENT DATE: 20130208
